FAERS Safety Report 25000622 (Version 3)
Quarter: 2025Q4

REPORT INFORMATION
  Report Type: Spontaneous
  Country: US (occurrence: US)
  Receive Date: 20250222
  Receipt Date: 20251229
  Transmission Date: 20260117
  Serious: No
  Sender: SANOFI AVENTIS
  Company Number: US-SA-2025SA051573

PATIENT
  Sex: Male

DRUGS (1)
  1. DUPIXENT [Suspect]
     Active Substance: DUPILUMAB
     Indication: Eosinophilic oesophagitis
     Dosage: 300 MG, QOW
     Route: 058
     Dates: start: 20241026

REACTIONS (5)
  - Impaired quality of life [Unknown]
  - Dysphagia [Recovered/Resolved]
  - Vomiting [Recovered/Resolved]
  - Eye irritation [Unknown]
  - Eosinophilic oesophagitis [Unknown]
